FAERS Safety Report 9153468 (Version 1)
Quarter: 2013Q1

REPORT INFORMATION
  Report Type: Spontaneous
  Country: US (occurrence: None)
  Receive Date: 20130306
  Receipt Date: 20130306
  Transmission Date: 20140127
  Serious: Yes (Life-Threatening, Disabling)
  Sender: FDA-Public Use
  Company Number: None

PATIENT
  Age: 64 Year
  Sex: Female
  Weight: 56.7 kg

DRUGS (2)
  1. LEVEMIR [Suspect]
     Indication: TYPE 1 DIABETES MELLITUS
     Dosage: 12 UNITS AM, 8 UNITS AM, PM IM
     Route: 030
     Dates: start: 20130103, end: 20130131
  2. APIDRA [Suspect]
     Indication: TYPE 1 DIABETES MELLITUS
     Dosage: 2-10 UNITS, AS NEEDED AS NEEDED IM
     Route: 030
     Dates: start: 20130103, end: 20130131

REACTIONS (3)
  - Drug resistance [None]
  - Drug effect decreased [None]
  - Product quality issue [None]
